FAERS Safety Report 16249539 (Version 1)
Quarter: 2019Q2

REPORT INFORMATION
  Report Type: Other
  Country: US (occurrence: US)
  Receive Date: 20190429
  Receipt Date: 20190429
  Transmission Date: 20190711
  Serious: Yes (Hospitalization)
  Sender: FDA-Public Use
  Company Number: US-MSN LABORATORIES PRIVATE LIMITED-2066382

PATIENT
  Age: 67 Year
  Sex: Female

DRUGS (7)
  1. CAPECITABINE. [Suspect]
     Active Substance: CAPECITABINE
     Indication: ADENOCARCINOMA
     Route: 065
  2. LACTULOSE. [Concomitant]
     Active Substance: LACTULOSE
     Route: 065
  3. CARBOPLATIN. [Concomitant]
     Active Substance: CARBOPLATIN
     Route: 065
  4. RIFAXIMIN. [Concomitant]
     Active Substance: RIFAXIMIN
     Route: 065
  5. GLYCEROL PHENYL BUTYRATE [Concomitant]
     Route: 065
  6. FOLATE [Suspect]
     Active Substance: FOLATE SODIUM
     Route: 065
  7. NEOMYCIN. [Concomitant]
     Active Substance: NEOMYCIN
     Route: 065

REACTIONS (5)
  - Encephalopathy [Unknown]
  - Lethargy [Unknown]
  - Drug interaction [Unknown]
  - Hyperammonaemia [Recovered/Resolved]
  - Hepatic steatosis [Unknown]
